FAERS Safety Report 9249340 (Version 1)
Quarter: 2013Q2

REPORT INFORMATION
  Report Type: Spontaneous
  Country: US (occurrence: US)
  Receive Date: 20130423
  Receipt Date: 20130423
  Transmission Date: 20140414
  Serious: Yes (Other)
  Sender: FDA-Public Use
  Company Number: US-ASTRAZENECA-2013SE25272

PATIENT
  Age: 73 Year
  Sex: Male
  Weight: 77.1 kg

DRUGS (12)
  1. LISINOPRIL [Suspect]
     Indication: HYPERTENSION
     Route: 048
  2. CRESTOR [Suspect]
     Indication: BLOOD CHOLESTEROL ABNORMAL
     Route: 048
     Dates: start: 201201
  3. CRESTOR [Suspect]
     Indication: STENT PLACEMENT
     Route: 048
     Dates: start: 201201
  4. CRESTOR [Suspect]
     Indication: BLOOD CHOLESTEROL ABNORMAL
     Route: 048
     Dates: start: 201204, end: 201209
  5. CRESTOR [Suspect]
     Indication: STENT PLACEMENT
     Route: 048
     Dates: start: 201204, end: 201209
  6. CRESTOR [Suspect]
     Indication: BLOOD CHOLESTEROL ABNORMAL
     Route: 048
     Dates: start: 20130405
  7. CRESTOR [Suspect]
     Indication: STENT PLACEMENT
     Route: 048
     Dates: start: 20130405
  8. BYSTOLIC [Suspect]
     Route: 065
     Dates: start: 201206
  9. PRASOZIN [Concomitant]
     Indication: POST-TRAUMATIC STRESS DISORDER
  10. PRASOZIN [Concomitant]
     Indication: NIGHTMARE
  11. PLAVIX [Concomitant]
     Dates: start: 20130405
  12. AMLODIPINE [Concomitant]
     Indication: HYPERTENSION

REACTIONS (12)
  - Ataxia [Unknown]
  - Transient ischaemic attack [Unknown]
  - Blood pressure abnormal [Unknown]
  - Malabsorption [Unknown]
  - Gait disturbance [Not Recovered/Not Resolved]
  - Weight decreased [Unknown]
  - Weight increased [Unknown]
  - Body height decreased [Unknown]
  - Fibromyalgia [Unknown]
  - Osteoporosis [Unknown]
  - Dizziness [Unknown]
  - Intentional drug misuse [Unknown]
